FAERS Safety Report 7023560-3 (Version None)
Quarter: 2010Q3

REPORT INFORMATION
  Report Type: 
  Country: None (occurrence: None)
  Receive Date: 20100930
  Receipt Date: 20100701
  Transmission Date: 20110219
  Serious: Yes (Other)
  Sender: FDA-Public Use
  Company Number: CA-GENENTECH-299402

PATIENT
  Sex: Male

DRUGS (6)
  1. RANIBIZUMAB [Suspect]
     Indication: MACULAR DEGENERATION
     Dosage: 0.5 MG, Q4W
     Route: 031
     Dates: start: 20080915, end: 20100209
  2. RANIBIZUMAB [Suspect]
     Dosage: UNK MG, Q4W
     Route: 031
     Dates: start: 20100209, end: 20100209
  3. GLUCOSAMINE [Concomitant]
     Indication: ARTHRITIS
     Dosage: 500 MG, UNK
     Route: 048
     Dates: start: 20040101
  4. LIPITOR [Concomitant]
     Indication: HYPERLIPIDAEMIA
     Dosage: 20 MG, UNK
     Route: 048
     Dates: start: 19980101
  5. SAW PALMETTO [Concomitant]
     Indication: PROSTATOMEGALY
     Dosage: UNK
     Route: 048
     Dates: start: 20051201
  6. VIGAMOX [Concomitant]
     Indication: PRODUCT USED FOR UNKNOWN INDICATION

REACTIONS (9)
  - ENDOPHTHALMITIS [None]
  - EYE PAIN [None]
  - IRITIS [None]
  - RETINAL SCAR [None]
  - VISION BLURRED [None]
  - VISUAL ACUITY REDUCED [None]
  - VITREOUS DETACHMENT [None]
  - VITREOUS DISORDER [None]
  - VITRITIS [None]
